FAERS Safety Report 18479910 (Version 1)
Quarter: 2020Q4

REPORT INFORMATION
  Report Type: Spontaneous
  Country: US (occurrence: US)
  Receive Date: 20201108
  Receipt Date: 20201108
  Transmission Date: 20210114
  Serious: No
  Sender: FDA-Public Use
  Company Number: None

PATIENT
  Age: 77 Year
  Sex: Female
  Weight: 75.78 kg

DRUGS (9)
  1. METOPROLOL. [Concomitant]
     Active Substance: METOPROLOL
  2. CAPECITABINE. [Suspect]
     Active Substance: CAPECITABINE
     Indication: CHOLANGIOCARCINOMA
     Route: 048
     Dates: start: 20200827
  3. CAPECITABINE. [Suspect]
     Active Substance: CAPECITABINE
     Indication: CHOLANGIOCARCINOMA
     Route: 048
     Dates: start: 20200827
  4. TYLENOL [Concomitant]
     Active Substance: ACETAMINOPHEN
  5. DICLOFENAC [Concomitant]
     Active Substance: DICLOFENAC
  6. LASIX [Concomitant]
     Active Substance: FUROSEMIDE
  7. MVI [Concomitant]
     Active Substance: VITAMINS
  8. DESOXIMETASONE. [Concomitant]
     Active Substance: DESOXIMETASONE
  9. FAMOTIDINE. [Concomitant]
     Active Substance: FAMOTIDINE

REACTIONS (4)
  - Nasal discomfort [None]
  - Peripheral swelling [None]
  - Diarrhoea [None]
  - Skin exfoliation [None]

NARRATIVE: CASE EVENT DATE: 20201108
